FAERS Safety Report 22173298 (Version 2)
Quarter: 2023Q2

REPORT INFORMATION
  Report Type: Spontaneous
  Country: FR (occurrence: FR)
  Receive Date: 20230404
  Receipt Date: 20230410
  Transmission Date: 20230722
  Serious: Yes (Other)
  Sender: FDA-Public Use
  Company Number: FR-GUERBETG-FR-20230110

PATIENT
  Age: 61 Year
  Sex: Female
  Weight: 70 kg

DRUGS (8)
  1. GADOTERATE MEGLUMINE [Suspect]
     Active Substance: GADOTERATE MEGLUMINE
     Indication: Magnetic resonance imaging head
     Route: 042
     Dates: start: 20230321, end: 20230321
  2. KARDEGIC [Concomitant]
     Active Substance: ASPIRIN DL-LYSINE
     Indication: Product used for unknown indication
     Dosage: 1 SACHET PER DAY
     Route: 048
  3. PROPRANOLOL [Concomitant]
     Active Substance: PROPRANOLOL HYDROCHLORIDE
     Indication: Product used for unknown indication
     Dosage: 0.5 TABLET
     Route: 065
  4. PROZAC [Concomitant]
     Active Substance: FLUOXETINE HYDROCHLORIDE
     Indication: Product used for unknown indication
     Route: 048
  5. ESOMEPRAZOLE [Concomitant]
     Active Substance: ESOMEPRAZOLE
     Indication: Product used for unknown indication
     Route: 048
  6. ATORVASTATIN CALCIUM TRIHYDRATE\EZETIMIBE [Concomitant]
     Active Substance: ATORVASTATIN CALCIUM TRIHYDRATE\EZETIMIBE
     Indication: Product used for unknown indication
     Route: 048
  7. ALEPSAL [Concomitant]
     Indication: Product used for unknown indication
     Route: 048
  8. AMILORIDE HYDROCHLOROTHIAZIDE [Concomitant]
     Indication: Product used for unknown indication
     Route: 048

REACTIONS (1)
  - Drug hypersensitivity [Recovered/Resolved]

NARRATIVE: CASE EVENT DATE: 20230321
